FAERS Safety Report 13050995 (Version 1)
Quarter: 2016Q4

REPORT INFORMATION
  Report Type: Spontaneous
  Country: US (occurrence: US)
  Receive Date: 20161221
  Receipt Date: 20161221
  Transmission Date: 20170207
  Serious: No
  Sender: FDA-Public Use
  Company Number: US-PFIZER INC-2016580236

PATIENT
  Sex: Female

DRUGS (2)
  1. DUAVEE [Suspect]
     Active Substance: BAZEDOXIFENE ACETATE\ESTROGENS, CONJUGATED
     Indication: MOOD ALTERED
  2. DUAVEE [Suspect]
     Active Substance: BAZEDOXIFENE ACETATE\ESTROGENS, CONJUGATED
     Indication: ASTHENIA
     Dosage: UNK

REACTIONS (7)
  - Irritability [Unknown]
  - Sensation of foreign body [Unknown]
  - Product use issue [Unknown]
  - Depressed mood [Unknown]
  - Crying [Unknown]
  - Drug intolerance [Unknown]
  - Hot flush [Unknown]
